FAERS Safety Report 4314322-6 (Version None)
Quarter: 2004Q1

REPORT INFORMATION
  Report Type: 
  Country: None (occurrence: None)
  Receive Date: 20040309
  Receipt Date: 20040302
  Transmission Date: 20041129
  Serious: Yes (Hospitalization)
  Sender: FDA-Public Use
  Company Number: WAES 0403FRA00007

PATIENT
  Age: 96 Year
  Sex: Female
  Weight: 55 kg

DRUGS (1)
  1. VIOXX [Suspect]
     Indication: OSTEOARTHRITIS
     Route: 048
     Dates: start: 20031028, end: 20031112

REACTIONS (11)
  - ABDOMINAL PAIN [None]
  - ABDOMINAL TENDERNESS [None]
  - ANOREXIA [None]
  - DEPRESSED LEVEL OF CONSCIOUSNESS [None]
  - DUODENAL ULCER HAEMORRHAGE [None]
  - FLATULENCE [None]
  - HAEMATEMESIS [None]
  - HAEMOGLOBIN DECREASED [None]
  - INTESTINAL FUNCTIONAL DISORDER [None]
  - MALAISE [None]
  - MELAENA [None]
